FAERS Safety Report 12336882 (Version 1)
Quarter: 2016Q2

REPORT INFORMATION
  Report Type: Spontaneous
  Country: US (occurrence: None)
  Receive Date: 20160504
  Receipt Date: 20160504
  Transmission Date: 20160815
  Serious: Yes (Other)
  Sender: FDA-Public Use
  Company Number: None

PATIENT
  Age: 54 Year
  Sex: Female
  Weight: 64.86 kg

DRUGS (5)
  1. VIT B [Concomitant]
     Active Substance: VITAMIN B
  2. MG2 [Concomitant]
  3. BYDUREON [Suspect]
     Active Substance: EXENATIDE
     Indication: TYPE 2 DIABETES MELLITUS
     Route: 058
     Dates: start: 20160307, end: 20160314
  4. VITAMIN C [Concomitant]
     Active Substance: ASCORBIC ACID
  5. CA2 [Concomitant]

REACTIONS (10)
  - Insomnia [None]
  - Nausea [None]
  - Tremor [None]
  - Vomiting [None]
  - Fatigue [None]
  - Blood glucose decreased [None]
  - Cognitive disorder [None]
  - Headache [None]
  - Food craving [None]
  - Injection site nodule [None]
